FAERS Safety Report 5134635-8 (Version None)
Quarter: 2006Q4

REPORT INFORMATION
  Report Type: 
  Country: None (occurrence: None)
  Receive Date: 20061025
  Receipt Date: 20060728
  Transmission Date: 20070319
  Serious: Yes (Disabling, Other)
  Sender: FDA-Public Use
  Company Number: JP-JPN-A200602872

PATIENT
  Age: 66 Year
  Sex: Female

DRUGS (4)
  1. ZIAGEN [Suspect]
     Indication: HIV INFECTION
     Dosage: 1TAB TWICE PER DAY
     Route: 048
     Dates: start: 20010410
  2. EPIVIR [Suspect]
     Indication: HIV INFECTION
     Dosage: 150MG TWICE PER DAY
     Route: 048
     Dates: start: 20051031
  3. ZERIT [Suspect]
     Indication: HIV INFECTION
     Route: 048
     Dates: start: 20010410, end: 20051030
  4. STOCRIN [Suspect]
     Indication: HIV INFECTION
     Route: 048
     Dates: start: 20010410

REACTIONS (5)
  - CEREBRAL INFARCTION [None]
  - DEPRESSION [None]
  - HEADACHE [None]
  - HEMIPLEGIA [None]
  - INSOMNIA [None]
